FAERS Safety Report 17818813 (Version 1)
Quarter: 2020Q2

REPORT INFORMATION
  Report Type: Spontaneous
  Country: US (occurrence: US)
  Receive Date: 20200522
  Receipt Date: 20200522
  Transmission Date: 20200714
  Serious: Yes (Other)
  Sender: FDA-Public Use
  Company Number: US-BRISTOL-MYERS SQUIBB COMPANY-BMS-2020-039261

PATIENT
  Age: 5 Decade
  Sex: Female

DRUGS (1)
  1. SPRYCEL [Suspect]
     Active Substance: DASATINIB
     Indication: CHRONIC MYELOID LEUKAEMIA
     Dosage: 80 MILLIGRAM, ONCE A DAY, BUT DOESN^T TAKE IT THAT OFTEN
     Route: 048
     Dates: start: 2018

REACTIONS (3)
  - Respiratory tract infection [Unknown]
  - Urinary tract infection [Unknown]
  - Treatment noncompliance [Unknown]
